FAERS Safety Report 5658754-2 (Version None)
Quarter: 2008Q1

REPORT INFORMATION
  Report Type: 
  Country: None (occurrence: None)
  Receive Date: 20080310
  Receipt Date: 20070430
  Transmission Date: 20080703
  Serious: No
  Sender: FDA-Public Use
  Company Number: US-BAYER-200711060BCC

PATIENT
  Age: 86 Year
  Sex: Male
  Weight: 70 kg

DRUGS (5)
  1. ALEVE [Suspect]
     Indication: CHEST PAIN
     Dosage: TOTAL DAILY DOSE: 220 MG  UNIT DOSE: 220 MG
     Route: 048
     Dates: start: 20070330
  2. ST. JOSEPH 81 MG ASPIRIN [Concomitant]
     Route: 048
  3. NORVASC [Concomitant]
  4. LEVOXINE [Concomitant]
  5. PRAVACHOL [Concomitant]

REACTIONS (2)
  - HERPES ZOSTER [None]
  - RASH [None]
